FAERS Safety Report 4555539-5 (Version None)
Quarter: 2005Q1

REPORT INFORMATION
  Report Type: 
  Country: None (occurrence: None)
  Receive Date: 20050119
  Receipt Date: 20041117
  Transmission Date: 20050727
  Serious: Yes (Hospitalization)
  Sender: FDA-Public Use
  Company Number: GB-BRISTOL-MYERS SQUIBB COMPANY-12768065

PATIENT
  Age: 42 Year
  Sex: Male

DRUGS (3)
  1. ABILIFY [Suspect]
     Dosage: INCREASED TO 30 MG/DAY AFTER ONE WEEK.
     Route: 048
  2. CLOZAPINE [Suspect]
     Indication: SCHIZOPHRENIA
  3. QUETIAPINE [Suspect]

REACTIONS (7)
  - BLOOD CREATINE PHOSPHOKINASE INCREASED [None]
  - DISTURBANCE IN ATTENTION [None]
  - HALLUCINATION [None]
  - MUSCLE RIGIDITY [None]
  - SCHIZOPHRENIA [None]
  - SOCIAL AVOIDANT BEHAVIOUR [None]
  - TARDIVE DYSKINESIA [None]
